FAERS Safety Report 7409179-0 (Version None)
Quarter: 2011Q2

REPORT INFORMATION
  Report Type: 
  Country: None (occurrence: None)
  Receive Date: 20110412
  Receipt Date: 20110331
  Transmission Date: 20111010
  Serious: Yes (Hospitalization, Disabling)
  Sender: FDA-Public Use
  Company Number: DE-ROCHE-769521

PATIENT
  Age: 82 Year
  Weight: 70 kg

DRUGS (2)
  1. AVASTIN [Suspect]
     Route: 065
     Dates: start: 20110117
  2. CAPECITABINE [Suspect]
     Dosage: LAST ADMINISTRATION PRIOR TO THE EVENTS ON 31 JAN 2011
     Route: 048
     Dates: start: 20110117

REACTIONS (2)
  - HEMIPARESIS [None]
  - TRANSIENT ISCHAEMIC ATTACK [None]
